FAERS Safety Report 4924421-3 (Version None)
Quarter: 2006Q1

REPORT INFORMATION
  Report Type: 
  Country: None (occurrence: None)
  Receive Date: 20060221
  Receipt Date: 20060209
  Transmission Date: 20060701
  Serious: Yes (Other)
  Sender: FDA-Public Use
  Company Number: 2005162355

PATIENT
  Sex: Female
  Weight: 54.4316 kg

DRUGS (10)
  1. ZOLOFT [Suspect]
     Indication: MAJOR DEPRESSION
     Dosage: 50 MG (50 MG, 1 IN 1 D), ORAL
     Route: 048
     Dates: start: 19930101
  2. XANAX [Suspect]
     Indication: ANXIETY
     Dosage: ORAL
     Route: 048
  3. XANAX [Suspect]
     Indication: TENSION
     Dosage: ORAL
     Route: 048
  4. LIPITOR [Suspect]
     Indication: BLOOD CHOLESTEROL INCREASED
     Dosage: 80 MG (80 MG, 1 IN 1 D)
     Dates: start: 20050101
  5. REMERON [Suspect]
     Indication: DEPRESSION
     Dates: end: 20051101
  6. PAXIL [Suspect]
     Indication: ILL-DEFINED DISORDER
     Dates: start: 20030101
  7. EFFEXOR XR [Suspect]
     Indication: ILL-DEFINED DISORDER
  8. INDERAL [Concomitant]
  9. REGLAN [Concomitant]
  10. ALL OTHER THERAPEUTIC PRODUCTS (ALL OTHER THERAPEUTIC PRODUCTS) [Concomitant]

REACTIONS (16)
  - ANXIETY [None]
  - CONDITION AGGRAVATED [None]
  - DIARRHOEA [None]
  - DRUG DOSE OMISSION [None]
  - DRUG INEFFECTIVE [None]
  - DYSPNOEA [None]
  - EYE DISORDER [None]
  - FEELING ABNORMAL [None]
  - FLAT AFFECT [None]
  - MUSCULAR WEAKNESS [None]
  - MYALGIA [None]
  - PAIN [None]
  - SLEEP DISORDER [None]
  - SURGERY [None]
  - TACHYCARDIA [None]
  - TENSION [None]
